FAERS Safety Report 13641443 (Version 1)
Quarter: 2017Q2

REPORT INFORMATION
  Report Type: Spontaneous
  Country: US (occurrence: US)
  Receive Date: 20170609
  Receipt Date: 20170609
  Transmission Date: 20170830
  Serious: Yes (Death)
  Sender: FDA-Public Use
  Company Number: None

PATIENT
  Age: 91 Year
  Sex: Male

DRUGS (5)
  1. PREDNISONE. [Concomitant]
     Active Substance: PREDNISONE
  2. TETRABENAZINE 12.5MG VALEANT INTERNATIONAL [Suspect]
     Active Substance: TETRABENAZINE
     Indication: DYSKINESIA
     Dosage: 1 TABLET TID ORAL
     Route: 048
     Dates: start: 20161221, end: 20170608
  3. CLONAZEPAM. [Concomitant]
     Active Substance: CLONAZEPAM
  4. LISINOPRIL. [Concomitant]
     Active Substance: LISINOPRIL
  5. FLONASE [Concomitant]
     Active Substance: FLUTICASONE PROPIONATE

REACTIONS (1)
  - Death [None]

NARRATIVE: CASE EVENT DATE: 20170608
